FAERS Safety Report 15531124 (Version 21)
Quarter: 2020Q2

REPORT INFORMATION
  Report Type: Report from Study
  Country: CA (occurrence: CA)
  Receive Date: 20181019
  Receipt Date: 20200619
  Transmission Date: 20200713
  Serious: Yes (Hospitalization, Other)
  Sender: FDA-Public Use
  Company Number: PHHY2017CA046680

PATIENT
  Age: 41 Year
  Sex: Male

DRUGS (16)
  1. DELATESTRYL [Concomitant]
     Active Substance: TESTOSTERONE ENANTHATE
     Indication: PRODUCT USED FOR UNKNOWN INDICATION
     Dosage: 60 MG, QW
     Route: 058
  2. DELATESTRYL [Concomitant]
     Active Substance: TESTOSTERONE ENANTHATE
     Dosage: 140 MG, QW
     Route: 058
  3. ANET [Concomitant]
     Indication: PRODUCT USED FOR UNKNOWN INDICATION
     Dosage: 20 MG, UNK (5 JOURS)
     Route: 065
  4. SANDOSTATIN LAR DEPOT [Suspect]
     Active Substance: OCTREOTIDE ACETATE
     Indication: ACROMEGALY
     Dosage: 30 MG, QMO (EVERY 4 WEEKS)
     Route: 030
     Dates: start: 20170323, end: 20171102
  5. SOMAVERT [Concomitant]
     Active Substance: PEGVISOMANT
     Indication: ACROMEGALY
     Dosage: UNK
     Route: 065
     Dates: start: 201908
  6. CORTEF [Concomitant]
     Active Substance: HYDROCORTISONE
     Indication: STRESS
     Dosage: UNK, BID, (30 MG AM AND 20 MG PM)
     Route: 065
  7. SANDOSTATIN LAR DEPOT [Suspect]
     Active Substance: OCTREOTIDE ACETATE
     Dosage: 30 MG, QMO (EVERY 4 WEEKS)
     Route: 030
     Dates: start: 20181012
  8. CORTISONE [Concomitant]
     Active Substance: CORTISONE
     Indication: ROTATOR CUFF SYNDROME
     Dosage: UNK
     Route: 065
  9. SANDOSTATIN LAR DEPOT [Suspect]
     Active Substance: OCTREOTIDE ACETATE
     Dosage: UNK
     Route: 030
     Dates: start: 20190717
  10. SANDOSTATIN LAR DEPOT [Suspect]
     Active Substance: OCTREOTIDE ACETATE
     Dosage: 40 MG, Q4W
     Route: 030
     Dates: start: 20170323
  11. SANDOSTATIN LAR DEPOT [Suspect]
     Active Substance: OCTREOTIDE ACETATE
     Dosage: 30 MG, Q4W
     Route: 030
     Dates: start: 20170323, end: 20181123
  12. SANDOSTATIN LAR DEPOT [Suspect]
     Active Substance: OCTREOTIDE ACETATE
     Dosage: 40 MG, Q4W
     Route: 030
     Dates: start: 20181207
  13. CORTEF [Concomitant]
     Active Substance: HYDROCORTISONE
     Indication: INFECTION
     Dosage: 30 MG, (5 DAYS)
     Route: 065
  14. CELEBREX [Concomitant]
     Active Substance: CELECOXIB
     Indication: ARTHRALGIA
     Dosage: UNK
     Route: 065
  15. OCTREOTIDE. [Concomitant]
     Active Substance: OCTREOTIDE
     Indication: PRODUCT USED FOR UNKNOWN INDICATION
     Dosage: 50 UG, TID
     Route: 058
     Dates: start: 20170302
  16. CORTEF [Concomitant]
     Active Substance: HYDROCORTISONE
     Indication: PYREXIA
     Dosage: 3 DF, QD DAY FOR 5 DAYS
     Route: 065

REACTIONS (24)
  - Nasal congestion [Not Recovered/Not Resolved]
  - Arthralgia [Unknown]
  - Needle issue [Unknown]
  - Concomitant disease progression [Recovering/Resolving]
  - Rhinorrhoea [Not Recovered/Not Resolved]
  - Diarrhoea [Unknown]
  - Drug ineffective [Unknown]
  - Weight decreased [Unknown]
  - Blood pressure increased [Unknown]
  - Pituitary tumour [Recovering/Resolving]
  - Body temperature decreased [Unknown]
  - Loss of consciousness [Unknown]
  - Hot flush [Unknown]
  - Fatigue [Unknown]
  - Asthenia [Unknown]
  - Constipation [Unknown]
  - Effusion [Unknown]
  - Injection site pain [Recovered/Resolved]
  - Testicular mass [Unknown]
  - Product administration error [Unknown]
  - Nasopharyngitis [Not Recovered/Not Resolved]
  - Palpitations [Unknown]
  - Hepatomegaly [Unknown]
  - Ill-defined disorder [Unknown]

NARRATIVE: CASE EVENT DATE: 20170323
